FAERS Safety Report 11070309 (Version 1)
Quarter: 2015Q2

REPORT INFORMATION
  Report Type: Spontaneous
  Country: SE (occurrence: SE)
  Receive Date: 20150427
  Receipt Date: 20150427
  Transmission Date: 20150821
  Serious: Yes (Hospitalization)
  Sender: FDA-Public Use
  Company Number: SE-TEVA-557537ISR

PATIENT
  Age: 23 Year
  Sex: Female

DRUGS (1)
  1. CLINDAMYCIN [Suspect]
     Active Substance: CLINDAMYCIN\CLINDAMYCIN PHOSPHATE
     Route: 048

REACTIONS (4)
  - Throat tightness [Unknown]
  - Pruritus [Unknown]
  - Rash [Unknown]
  - Urticaria [Unknown]
